FAERS Safety Report 25944735 (Version 1)
Quarter: 2025Q4

REPORT INFORMATION
  Report Type: Spontaneous
  Country: US (occurrence: US)
  Receive Date: 20251021
  Receipt Date: 20251021
  Transmission Date: 20260118
  Serious: No
  Sender: Phathom Pharmaceuticals
  Company Number: US-PHATHOM PHARMACEUTICALS INC.-2025PHT01918

PATIENT
  Age: 66 Year
  Sex: Female

DRUGS (1)
  1. VOQUEZNA [Suspect]
     Active Substance: VONOPRAZAN FUMARATE
     Indication: Gastritis
     Dosage: UNK
     Route: 048
     Dates: start: 20250711, end: 20250713

REACTIONS (3)
  - Flatulence [Unknown]
  - Diarrhoea [Unknown]
  - Off label use [Recovered/Resolved]

NARRATIVE: CASE EVENT DATE: 20250701
